FAERS Safety Report 5451009-0 (Version None)
Quarter: 2007Q3

REPORT INFORMATION
  Report Type: 
  Country: None (occurrence: None)
  Receive Date: 20070911
  Receipt Date: 20070828
  Transmission Date: 20080115
  Serious: Yes (Death)
  Sender: FDA-Public Use
  Company Number: 100#03#2007-03263

PATIENT
  Age: 52 Year
  Sex: Male

DRUGS (1)
  1. SERTRALINE [Suspect]
     Indication: ANXIETY
     Dosage: 50 - 100 MG DAILY ORAL
     Route: 048
     Dates: start: 20070627

REACTIONS (4)
  - ANXIETY [None]
  - ASPHYXIA [None]
  - COMPLETED SUICIDE [None]
  - STRESS [None]
